FAERS Safety Report 26039333 (Version 1)
Quarter: 2025Q4

REPORT INFORMATION
  Report Type: Spontaneous
  Country: EU (occurrence: EU)
  Receive Date: 20251113
  Receipt Date: 20251113
  Transmission Date: 20260118
  Serious: Yes (Other)
  Sender: REGENERON
  Company Number: EU-BAYER-2025A148618

PATIENT
  Age: 82 Year
  Sex: Female

DRUGS (1)
  1. EYLEA [Suspect]
     Active Substance: AFLIBERCEPT
     Indication: Product used for unknown indication
     Route: 031

REACTIONS (4)
  - Palpitations [Recovering/Resolving]
  - Burning sensation [Recovering/Resolving]
  - Feeling hot [Recovering/Resolving]
  - Pruritus [Recovering/Resolving]
